FAERS Safety Report 24467499 (Version 1)
Quarter: 2024Q4

REPORT INFORMATION
  Report Type: Report from Study
  Country: US (occurrence: US)
  Receive Date: 20241018
  Receipt Date: 20241018
  Transmission Date: 20250114
  Serious: No
  Sender: ROCHE
  Company Number: US-ROCHE-3562062

PATIENT
  Age: 26 Year
  Sex: Female
  Weight: 123.0 kg

DRUGS (15)
  1. XOLAIR [Suspect]
     Active Substance: OMALIZUMAB
     Indication: Asthma
     Route: 058
  2. ALBUTEROL [Concomitant]
     Active Substance: ALBUTEROL
     Dosage: TAKE 2.5 MG BY NEBULIZATION EVERY 4 (FOUR) HOURS IF NEEDED.
  3. ALBUTEROL;BUDESONIDE [Concomitant]
     Dosage: INHALE 2 PUFIS EVERY 6 (SIX) HOURS IF NEEDED
  4. AMITRIPTYLINE [Concomitant]
     Active Substance: AMITRIPTYLINE
     Dosage: TAKE 100 MG BY MOUTH EVERY NIGHT
     Route: 048
  5. PULMICORT TURBUHALER [Concomitant]
     Active Substance: BUDESONIDE
     Dosage: COMPOUND: MIX 0.5 MG RESPULE IN SINUSRINSE. IRRIGATE EACH SIDE BID
  6. CLEOCIN T [Concomitant]
     Active Substance: CLINDAMYCIN PHOSPHATE
     Dosage: APPLY TOPICALLY.
     Route: 061
  7. FLEXERIL [Concomitant]
     Active Substance: CYCLOBENZAPRINE HYDROCHLORIDE
     Dosage: TAKE 10 MG BY MOUTH IF NEEDED
     Route: 048
  8. VOLTAREN [Concomitant]
     Active Substance: DICLOFENAC SODIUM
     Dosage: TAKE 75 MG BY MOUTH IN THE MORNING AND 75 MG IN THE EVENING
     Route: 048
  9. LUNESTA [Concomitant]
     Active Substance: ESZOPICLONE
  10. LIDEX [Concomitant]
     Active Substance: FLUOCINONIDE
     Route: 061
  11. XHANCE [Concomitant]
     Active Substance: FLUTICASONE PROPIONATE
     Dosage: ADMINISTER 1 SPRAY INTO EACH NOSTRIL IN THE MORNING AND 1 SPRAY IN THE EVENING.
  12. ADVAIR HFA [Concomitant]
     Active Substance: FLUTICASONE PROPIONATE\SALMETEROL XINAFOATE
     Dosage: INHALE 2 PUFFS IN THE MORNING AND 2 PUFFS BEFORE BEDTIME. RINSE MOUTH WITH WATER AFTER USE TO REDUCE
  13. LAMICTAL [Concomitant]
     Active Substance: LAMOTRIGINE
     Dosage: TAKE 2 TABLETS BY MOUTH EVERY MORNING AND TAKE TWO TABLETS BY MOUTH EVERY EVENING
     Route: 048
  14. PREVACID [Concomitant]
     Active Substance: LANSOPRAZOLE
     Dosage: TAKE 1 CAPSULE BY MOUTH 1 (ONE) TIME EACH DAY.
     Route: 048
  15. DEPO-PROVERA [Concomitant]
     Active Substance: MEDROXYPROGESTERONE ACETATE
     Dosage: 150 MG/ML SUSPENSION PREFILLED SYRINGE INJECTION SYRINGE

REACTIONS (3)
  - Off label use [Unknown]
  - Off label use [Unknown]
  - No adverse event [Unknown]
